FAERS Safety Report 6999271-7 (Version None)
Quarter: 2010Q3

REPORT INFORMATION
  Report Type: 
  Country: None (occurrence: None)
  Receive Date: 20100920
  Receipt Date: 20100304
  Transmission Date: 20110219
  Serious: Yes (Hospitalization)
  Sender: FDA-Public Use
  Company Number: US-ASTRAZENECA-2010SE09412

PATIENT
  Age: 9109 Day
  Sex: Male
  Weight: 77.1 kg

DRUGS (12)
  1. SEROQUEL [Suspect]
     Indication: BIPOLAR DISORDER
     Route: 048
     Dates: start: 20080101, end: 20091006
  2. SEROQUEL [Suspect]
     Indication: INSOMNIA
     Route: 048
     Dates: start: 20080101, end: 20091006
  3. SEROQUEL [Suspect]
     Route: 048
     Dates: start: 20091013, end: 20091201
  4. SEROQUEL [Suspect]
     Route: 048
     Dates: start: 20091013, end: 20091201
  5. SEROQUEL [Suspect]
     Route: 048
     Dates: start: 20100115, end: 20100130
  6. SEROQUEL [Suspect]
     Route: 048
     Dates: start: 20100115, end: 20100130
  7. SEROQUEL [Suspect]
     Route: 048
     Dates: start: 20100130
  8. SEROQUEL [Suspect]
     Route: 048
     Dates: start: 20100130
  9. SEROQUEL [Suspect]
     Route: 048
     Dates: start: 20100207
  10. SEROQUEL [Suspect]
     Route: 048
     Dates: start: 20100207
  11. SEROQUEL [Suspect]
     Route: 048
     Dates: start: 20100301
  12. SEROQUEL [Suspect]
     Route: 048
     Dates: start: 20100301

REACTIONS (3)
  - INSOMNIA [None]
  - MANIA [None]
  - WEIGHT INCREASED [None]
